FAERS Safety Report 5026907-2 (Version None)
Quarter: 2006Q2

REPORT INFORMATION
  Report Type: 
  Country: None (occurrence: None)
  Receive Date: 20060615
  Receipt Date: 20060508
  Transmission Date: 20061013
  Serious: Yes (Life-Threatening, Hospitalization)
  Sender: FDA-Public Use
  Company Number: 2006UW09292

PATIENT
  Age: 47 Year
  Sex: Male
  Weight: 140.9 kg

DRUGS (8)
  1. SEROQUEL [Suspect]
     Indication: BIPOLAR I DISORDER
     Route: 048
     Dates: start: 20000502, end: 20060323
  2. SEROQUEL [Suspect]
     Indication: INSOMNIA
     Route: 048
     Dates: start: 20000502, end: 20060323
  3. LOTENSIN [Concomitant]
  4. LEVOXYL [Concomitant]
  5. NIFEDIPINE [Concomitant]
  6. PRAVACHOL [Concomitant]
  7. ATENOLOL [Concomitant]
  8. LITHIUM CARBONATE [Concomitant]
     Route: 048
     Dates: start: 19830101, end: 20060323

REACTIONS (9)
  - BLOOD GLUCOSE INCREASED [None]
  - CELLULITIS [None]
  - DEHYDRATION [None]
  - DIABETES MELLITUS NON-INSULIN-DEPENDENT [None]
  - METABOLIC ACIDOSIS [None]
  - RENAL FAILURE ACUTE [None]
  - RENAL TUBULAR NECROSIS [None]
  - STREPTOCOCCAL SEPSIS [None]
  - WEIGHT INCREASED [None]
